FAERS Safety Report 19934875 (Version 2)
Quarter: 2021Q4

REPORT INFORMATION
  Report Type: Spontaneous
  Country: FI (occurrence: FI)
  Receive Date: 20211008
  Receipt Date: 20211018
  Transmission Date: 20220303
  Serious: Yes (Other)
  Sender: FDA-Public Use
  Company Number: FI-TAKEDA-2021TUS061097

PATIENT
  Age: 9 Year
  Sex: Male

DRUGS (1)
  1. LISDEXAMFETAMINE DIMESYLATE [Suspect]
     Active Substance: LISDEXAMFETAMINE DIMESYLATE
     Indication: Attention deficit hyperactivity disorder
     Dosage: 20 MILLIGRAM, QD
     Route: 065
     Dates: start: 202008, end: 202012

REACTIONS (3)
  - Leukopenia [Unknown]
  - Neutropenia [Not Recovered/Not Resolved]
  - Depressive symptom [Unknown]
